FAERS Safety Report 19105049 (Version 6)
Quarter: 2024Q4

REPORT INFORMATION
  Report Type: Spontaneous
  Country: IT (occurrence: IT)
  Receive Date: 20210408
  Receipt Date: 20241231
  Transmission Date: 20250114
  Serious: Yes (Hospitalization, Other)
  Sender: AUROBINDO
  Company Number: IT-AUROBINDO-AUR-APL-2021-014282

PATIENT
  Age: 93 Year
  Sex: Female

DRUGS (7)
  1. AZITHROMYCIN [Interacting]
     Active Substance: AZITHROMYCIN
     Indication: Erysipelas
     Dosage: UNK
     Route: 065
  2. CLARITHROMYCIN [Interacting]
     Active Substance: CLARITHROMYCIN
     Indication: Erysipelas
     Dosage: UNK
     Route: 065
  3. WARFARIN [Interacting]
     Active Substance: WARFARIN
     Indication: Atrial fibrillation
     Dosage: 17.5 MILLIGRAM, EVERY WEEK
     Route: 065
  4. WARFARIN [Interacting]
     Active Substance: WARFARIN
     Indication: Anticoagulant therapy
     Dosage: 16.25 MILLIGRAM, EVERY WEEK
     Route: 065
  5. WARFARIN [Interacting]
     Active Substance: WARFARIN
     Indication: Cardiac failure
     Dosage: 10 MILLIGRAM, EVERY WEEK, DOSE REDUCED
     Route: 065
  6. FUROSEMIDE [Concomitant]
     Active Substance: FUROSEMIDE
     Indication: Cardiac failure
     Dosage: UNK
     Route: 065
  7. ISOPROTERENOL HYDROCHLORIDE [Concomitant]
     Active Substance: ISOPROTERENOL HYDROCHLORIDE
     Indication: Bradycardia
     Dosage: UNK
     Route: 041

REACTIONS (8)
  - International normalised ratio increased [Recovered/Resolved]
  - Drug interaction [Recovered/Resolved]
  - Labelled drug-drug interaction issue [Recovered/Resolved]
  - Bradycardia [Unknown]
  - Oedema peripheral [Unknown]
  - Oliguria [Unknown]
  - Product use issue [Unknown]
  - Dyspnoea [Unknown]
